FAERS Safety Report 6975351-7 (Version None)
Quarter: 2010Q3

REPORT INFORMATION
  Report Type: 
  Country: None (occurrence: None)
  Receive Date: 20100910
  Receipt Date: 20090309
  Transmission Date: 20110219
  Serious: No
  Sender: FDA-Public Use
  Company Number: US-WYE-H08524209

PATIENT
  Sex: Female
  Weight: 86.26 kg

DRUGS (4)
  1. PRISTIQ [Suspect]
     Indication: ANXIETY
     Route: 048
     Dates: start: 20081001
  2. NORVASC [Concomitant]
  3. VYTORIN [Concomitant]
  4. AVALIDE [Concomitant]

REACTIONS (1)
  - DRUG INEFFECTIVE [None]
